FAERS Safety Report 5651640-3 (Version None)
Quarter: 2008Q1

REPORT INFORMATION
  Report Type: 
  Country: None (occurrence: None)
  Receive Date: 20080305
  Receipt Date: 20080224
  Transmission Date: 20080703
  Serious: Yes (Other)
  Sender: FDA-Public Use
  Company Number: JP-ABBOTT-08P-087-0439537-00

PATIENT
  Age: 13 Year
  Sex: Female

DRUGS (1)
  1. CEFZON [Suspect]
     Indication: DRUG USE FOR UNKNOWN INDICATION
     Route: 048
     Dates: start: 20060701, end: 20060701

REACTIONS (2)
  - LIVER DISORDER [None]
  - TOXIC EPIDERMAL NECROLYSIS [None]
